FAERS Safety Report 19493364 (Version 2)
Quarter: 2022Q1

REPORT INFORMATION
  Report Type: Other
  Country: BE (occurrence: None)
  Receive Date: 20210705
  Receipt Date: 20220110
  Transmission Date: 20220423
  Serious: Yes (Other)
  Sender: FDA-Public Use
  Company Number: BE-ROCHE-2859723

PATIENT

DRUGS (6)
  1. RITUXIMAB [Suspect]
     Active Substance: RITUXIMAB
     Indication: B-cell lymphoma
     Dosage: ON DAY 1
     Route: 041
  2. DEXAMETHASONE [Suspect]
     Active Substance: DEXAMETHASONE
     Indication: B-cell lymphoma
     Dosage: ON DAY 1 TO 4
     Route: 065
  3. CISPLATIN [Suspect]
     Active Substance: CISPLATIN
     Indication: B-cell lymphoma
     Dosage: ON DAY 1
     Route: 065
  4. GEMCITABINE [Suspect]
     Active Substance: GEMCITABINE
     Indication: B-cell lymphoma
     Dosage: 1 G/M2 ON DAY 1 AND 8
     Route: 065
  5. SELINEXOR [Suspect]
     Active Substance: SELINEXOR
     Indication: B-cell lymphoma
     Dosage: DOSE LEVEL 1 WAS GIVEN ON DAYS 1, 3, 8, 10 (COHORT A),
     Route: 065
  6. SELINEXOR [Suspect]
     Active Substance: SELINEXOR
     Dosage: FROM DECEMBER 2017 DAYS 1, 8 AND 15 (COHORT B).
     Route: 065

REACTIONS (3)
  - Neutropenia [Unknown]
  - Thrombocytopenia [Unknown]
  - Decreased appetite [Unknown]
